FAERS Safety Report 13468527 (Version 1)
Quarter: 2017Q2

REPORT INFORMATION
  Report Type: Spontaneous
  Country: US (occurrence: US)
  Receive Date: 20170421
  Receipt Date: 20170421
  Transmission Date: 20170830
  Serious: Yes (Other)
  Sender: FDA-Public Use
  Company Number: US-PFIZER INC-2017171103

PATIENT
  Age: 78 Year
  Sex: Female
  Weight: 54.43 kg

DRUGS (2)
  1. LYRICA [Suspect]
     Active Substance: PREGABALIN
     Indication: PAIN IN EXTREMITY
     Dosage: 75 MG, 2X/DAY
     Dates: start: 20170415, end: 20170416
  2. LYRICA [Suspect]
     Active Substance: PREGABALIN
     Indication: DIABETIC NEUROPATHY

REACTIONS (9)
  - Abasia [Unknown]
  - Tremor [Unknown]
  - Hallucination [Not Recovered/Not Resolved]
  - Dizziness [Unknown]
  - Abnormal behaviour [Not Recovered/Not Resolved]
  - Fall [Unknown]
  - Limb discomfort [Unknown]
  - Lip swelling [Unknown]
  - Somnolence [Unknown]

NARRATIVE: CASE EVENT DATE: 20170416
